FAERS Safety Report 7332518-6 (Version None)
Quarter: 2011Q1

REPORT INFORMATION
  Report Type: 
  Country: None (occurrence: None)
  Receive Date: 20110304
  Receipt Date: 20110302
  Transmission Date: 20110831
  Serious: Yes (Hospitalization)
  Sender: FDA-Public Use
  Company Number: IT-ROCHE-763193

PATIENT
  Sex: Female

DRUGS (5)
  1. ROCEPHIN [Suspect]
     Dosage: FREQUENCY: OD
     Route: 030
     Dates: start: 20110217, end: 20110217
  2. LORAZEPAM [Concomitant]
     Dosage: DRUG: LORAZEPAM/TAVOR
  3. SEREUPIN [Concomitant]
     Route: 048
  4. ANAURAN [Suspect]
     Dosage: ROUTE: AURICULAR
     Route: 050
     Dates: start: 20110217, end: 20110217
  5. GLUCOBAY [Concomitant]

REACTIONS (2)
  - URTICARIA [None]
  - DYSPNOEA [None]
